FAERS Safety Report 5491634-4 (Version None)
Quarter: 2007Q4

REPORT INFORMATION
  Report Type: 
  Country: None (occurrence: None)
  Receive Date: 20071018
  Receipt Date: 20071018
  Transmission Date: 20080405
  Serious: No
  Sender: FDA-Public Use
  Company Number: None

PATIENT
  Age: 61 Year
  Sex: Male

DRUGS (9)
  1. ZIAGEN [Suspect]
     Dates: start: 20040101, end: 20050601
  2. NORVIR [Suspect]
     Dates: start: 20040101, end: 20050601
  3. REYATAZ [Suspect]
     Dates: start: 20040101, end: 20050601
  4. VIRAMUNE [Suspect]
     Dates: start: 20040101, end: 20050601
  5. LISINOPRIL [Concomitant]
  6. ZANTAC [Concomitant]
  7. GEMFIBROZIL [Concomitant]
  8. NEURONTIN [Concomitant]
  9. TRAZODONE HCL [Concomitant]

REACTIONS (10)
  - AUTOIMMUNE HEPATITIS [None]
  - CARDIAC MURMUR [None]
  - CHOLESTASIS [None]
  - COAGULOPATHY [None]
  - DIARRHOEA [None]
  - ENCEPHALOPATHY [None]
  - HEPATITIS [None]
  - LIPODYSTROPHY ACQUIRED [None]
  - STRABISMUS [None]
  - WEIGHT DECREASED [None]
